FAERS Safety Report 5449627-9 (Version None)
Quarter: 2007Q3

REPORT INFORMATION
  Report Type: 
  Country: None (occurrence: None)
  Receive Date: 20070912
  Receipt Date: 20070905
  Transmission Date: 20080115
  Serious: Yes (Other)
  Sender: FDA-Public Use
  Company Number: PHBS2007BR14680

PATIENT
  Sex: Female
  Weight: 65 kg

DRUGS (2)
  1. DIOVAN AMLO [Suspect]
     Indication: HYPERTENSION
     Dosage: VALS 160 / AMLO 5 MG/DAY
     Route: 048
     Dates: start: 20070904
  2. INDAPAMIDE [Concomitant]
     Indication: DIURETIC THERAPY
     Dosage: 1.5 MG, UNK
     Route: 048
     Dates: start: 20070904

REACTIONS (9)
  - COUGH [None]
  - FATIGUE [None]
  - NASAL DISCOMFORT [None]
  - ORAL PRURITUS [None]
  - PAROSMIA [None]
  - SKIN IRRITATION [None]
  - SUFFOCATION FEELING [None]
  - THROAT IRRITATION [None]
  - URTICARIA [None]
